FAERS Safety Report 6440468-2 (Version None)
Quarter: 2009Q4

REPORT INFORMATION
  Report Type: 
  Country: None (occurrence: None)
  Receive Date: 20091112
  Receipt Date: 20091112
  Transmission Date: 20100525
  Serious: No
  Sender: FDA-Public Use
  Company Number: None

PATIENT
  Age: 68 Year
  Sex: Male

DRUGS (1)
  1. GLYBURIDE AND METFORMIN HYDROCHLORIDE [Suspect]
     Dosage: 1 TAB BID PO
     Route: 048

REACTIONS (1)
  - BLOOD GLUCOSE INCREASED [None]
